FAERS Safety Report 21203611 (Version 3)
Quarter: 2022Q3

REPORT INFORMATION
  Report Type: Spontaneous
  Country: US (occurrence: US)
  Receive Date: 20220811
  Receipt Date: 20220929
  Transmission Date: 20221027
  Serious: No
  Sender: FDA-Public Use
  Company Number: US-PFIZER INC-202201020969

PATIENT
  Age: 18 Year
  Sex: Male
  Weight: 88.45 kg

DRUGS (1)
  1. GENOTROPIN [Suspect]
     Active Substance: SOMATROPIN
     Indication: Growth hormone deficiency
     Dosage: 4 MG, DAILY (4.0MG DAILY, ADMINISTERED VIA INJECTION WITH THE PEN DEVICE)
     Dates: start: 2014

REACTIONS (1)
  - Device issue [Unknown]
